FAERS Safety Report 8408718-0 (Version None)
Quarter: 2012Q2

REPORT INFORMATION
  Report Type: 
  Country: None (occurrence: None)
  Receive Date: 20120604
  Receipt Date: 20120521
  Transmission Date: 20120825
  Serious: No
  Sender: FDA-Public Use
  Company Number: US-ASTRAZENECA-2012SE32649

PATIENT
  Sex: Male

DRUGS (3)
  1. ZANTAC [Concomitant]
  2. NEXIUM [Suspect]
     Dosage: ONCE OR THREE TIMES PER WEEK
     Route: 048
  3. NEXIUM [Suspect]
     Indication: GASTROOESOPHAGEAL REFLUX DISEASE
     Dosage: EVERY OTHER DAY
     Route: 048

REACTIONS (2)
  - GASTRIC POLYPS [None]
  - OFF LABEL USE [None]
